FAERS Safety Report 22284290 (Version 3)
Quarter: 2023Q2

REPORT INFORMATION
  Report Type: Spontaneous
  Country: US (occurrence: US)
  Receive Date: 20230504
  Receipt Date: 20230609
  Transmission Date: 20230721
  Serious: Yes (Death, Hospitalization, Other)
  Sender: FDA-Public Use
  Company Number: US-JNJFOC-20230507954

PATIENT
  Age: 81 Year
  Sex: Male

DRUGS (8)
  1. OPSUMIT [Suspect]
     Active Substance: MACITENTAN
     Indication: Product used for unknown indication
     Route: 048
     Dates: start: 20191112, end: 20230428
  2. BUMETANIDE [Concomitant]
     Active Substance: BUMETANIDE
     Dates: end: 20230428
  3. CLOPIDOGREL [Concomitant]
     Active Substance: CLOPIDOGREL BISULFATE
     Dates: end: 20230428
  4. METOPROLOL [Concomitant]
     Active Substance: METOPROLOL
     Dates: end: 20230428
  5. PRAVASTATIN [Concomitant]
     Active Substance: PRAVASTATIN
     Dates: end: 20230428
  6. SPIRONOLACTONE [Concomitant]
     Active Substance: SPIRONOLACTONE
     Dates: end: 20230428
  7. MEMANTINE [Concomitant]
     Active Substance: MEMANTINE
     Indication: Memory impairment
     Dates: end: 20230428
  8. ZOLOFT [Concomitant]
     Active Substance: SERTRALINE HYDROCHLORIDE
     Indication: Memory impairment
     Dates: end: 20230428

REACTIONS (7)
  - Death [Fatal]
  - Dementia Alzheimer^s type [Unknown]
  - Cerebral haemorrhage [Unknown]
  - Paracentesis [Unknown]
  - Fall [Unknown]
  - Dyspnoea [Unknown]
  - Weight increased [Unknown]

NARRATIVE: CASE EVENT DATE: 20230301
